FAERS Safety Report 18571978 (Version 1)
Quarter: 2020Q4

REPORT INFORMATION
  Report Type: Report from Study
  Country: None (occurrence: CA)
  Receive Date: 20201203
  Receipt Date: 20201203
  Transmission Date: 20210114
  Serious: Yes (Other)
  Sender: FDA-Public Use
  Company Number: CA-ABBVIE-20K-028-3670691-00

PATIENT
  Sex: Female

DRUGS (2)
  1. HUMIRA [Suspect]
     Active Substance: ADALIMUMAB
     Route: 058
     Dates: start: 2020
  2. HUMIRA [Suspect]
     Active Substance: ADALIMUMAB
     Indication: CROHN^S DISEASE
     Route: 058
     Dates: start: 20120101, end: 2020

REACTIONS (7)
  - Anastomotic stenosis [Not Recovered/Not Resolved]
  - Food intolerance [Unknown]
  - Intestinal obstruction [Not Recovered/Not Resolved]
  - Obstruction [Not Recovered/Not Resolved]
  - Inflammation [Not Recovered/Not Resolved]
  - Therapeutic product effect incomplete [Not Recovered/Not Resolved]
  - Abdominal pain [Unknown]
